FAERS Safety Report 12630952 (Version 2)
Quarter: 2016Q3

REPORT INFORMATION
  Report Type: Spontaneous
  Country: US (occurrence: US)
  Receive Date: 20160808
  Receipt Date: 20160808
  Transmission Date: 20161109
  Serious: No
  Sender: FDA-Public Use
  Company Number: US-BEH-2015051562

PATIENT
  Sex: Male
  Weight: 95.3 kg

DRUGS (11)
  1. TOPROL XL [Concomitant]
     Active Substance: METOPROLOL SUCCINATE
     Dosage: TOPROL XL , ER 24 H, 1 TAB DAILY
     Route: 048
  2. HIZENTRA [Suspect]
     Active Substance: HUMAN IMMUNOGLOBULIN G
     Indication: ANAPLASTIC LARGE-CELL LYMPHOMA
     Route: 058
  3. DIPHENHYDRAMINE. [Concomitant]
     Active Substance: DIPHENHYDRAMINE
     Route: 048
  4. EPIPEN AUTOINJECTOR [Concomitant]
     Indication: ANAPHYLACTIC REACTION
     Dosage: 0.3 MG PRN ANA
  5. WARFARIN SODIUM. [Concomitant]
     Active Substance: WARFARIN SODIUM
     Dosage: 1 TAB, EVERY OTHER DAY
     Route: 048
  6. LMX [Concomitant]
     Active Substance: LIDOCAINE
     Dosage: 4 % PRIOR
     Route: 061
  7. ACETAMINOPHEN. [Concomitant]
     Active Substance: ACETAMINOPHEN
     Dosage: UD
     Route: 048
  8. ASPIRIN. [Concomitant]
     Active Substance: ASPIRIN
     Dosage: 1 TAB DAILY
     Route: 048
  9. CENTRUM SILVER [Concomitant]
     Active Substance: MINERALS\VITAMINS
     Dosage: 1 TAB DAILY
     Route: 048
  10. HIZENTRA [Suspect]
     Active Substance: HUMAN IMMUNOGLOBULIN G
     Indication: ANAPLASTIC LARGE-CELL LYMPHOMA
     Route: 058
  11. HIZENTRA [Suspect]
     Active Substance: HUMAN IMMUNOGLOBULIN G
     Indication: EMBOLISM VENOUS
     Route: 058

REACTIONS (1)
  - Fatigue [Recovered/Resolved]
